FAERS Safety Report 13436374 (Version 1)
Quarter: 2017Q2

REPORT INFORMATION
  Report Type: Spontaneous
  Country: US (occurrence: US)
  Receive Date: 20170412
  Receipt Date: 20170412
  Transmission Date: 20170830
  Serious: Yes (Hospitalization)
  Sender: FDA-Public Use
  Company Number: None

PATIENT
  Age: 65 Year
  Sex: Female

DRUGS (1)
  1. REVLIMID [Suspect]
     Active Substance: LENALIDOMIDE
     Indication: PLASMA CELL MYELOMA
     Dosage: 1 QD X 21 DAYS
     Route: 048

REACTIONS (3)
  - Similar reaction on previous exposure to drug [None]
  - Urticaria [None]
  - Pyrexia [None]

NARRATIVE: CASE EVENT DATE: 20170407
